FAERS Safety Report 8958786 (Version 1)
Quarter: 2012Q4

REPORT INFORMATION
  Report Type: Spontaneous
  Country: US (occurrence: None)
  Receive Date: 20121206
  Receipt Date: 20121206
  Transmission Date: 20130627
  Serious: No
  Sender: FDA-Public Use
  Company Number: None

PATIENT
  Sex: Female
  Weight: 60.33 kg

DRUGS (1)
  1. MIRENA IUD [Suspect]
     Dates: start: 20120718, end: 20120803

REACTIONS (3)
  - Device dislocation [None]
  - Uterine perforation [None]
  - Device dislocation [None]
